FAERS Safety Report 15384059 (Version 1)
Quarter: 2018Q3

REPORT INFORMATION
  Report Type: Spontaneous
  Country: IT (occurrence: IT)
  Receive Date: 20180914
  Receipt Date: 20180914
  Transmission Date: 20181010
  Serious: Yes (Life-Threatening)
  Sender: FDA-Public Use
  Company Number: IT-SUN PHARMACEUTICAL INDUSTRIES LTD-2018RR-184309

PATIENT

DRUGS (7)
  1. OXALIPLATINO SUN 5 MG/ML, CONCENTRATO PER SOLUZIONE PER INFUSIONE [Suspect]
     Active Substance: OXALIPLATIN
     Indication: RECTAL CANCER
     Dosage: CYCLICAL
     Route: 042
     Dates: start: 20180808, end: 20180822
  2. RANITIDINA S.A.L.F. [Concomitant]
     Indication: PREMEDICATION
     Dosage: CYCLICAL
     Route: 042
     Dates: start: 20180808, end: 20180822
  3. LEVOFOLENE 175 MG POLVERE PER SOLUZIONE PER INFUSIONE [Concomitant]
     Indication: VITAMIN SUPPLEMENTATION
     Dosage: CYCLICAL
     Route: 042
     Dates: start: 20180808, end: 20180822
  4. GRANISETRON HIKMA, SOLUZIONE INIETTABILE, 1 MG/ML [Concomitant]
     Indication: PREMEDICATION
     Dosage: CYCLICAL
     Route: 042
     Dates: start: 20180808, end: 20180822
  5. SOLDESAM [Concomitant]
     Active Substance: DEXAMETHASONE
     Indication: PREMEDICATION
     Dosage: CYCLICAL
     Route: 042
     Dates: start: 20180808, end: 20180822
  6. VECTIBIX 20 MG/ML CONCENTRATE FOR SOLUTION FOR INFUSION [Concomitant]
     Indication: RECTAL CANCER
     Dosage: CYCLICAL
     Route: 042
     Dates: start: 20180808, end: 20180822
  7. LORATADINA TEVA [Concomitant]
     Indication: PREMEDICATION
     Dosage: CYCLICAL
     Route: 065
     Dates: start: 20180808, end: 20180822

REACTIONS (4)
  - Localised oedema [Recovering/Resolving]
  - Cyanosis [Recovering/Resolving]
  - Hypoxia [Recovering/Resolving]
  - Dyspnoea [Recovering/Resolving]

NARRATIVE: CASE EVENT DATE: 20180822
